FAERS Safety Report 6132381-5 (Version None)
Quarter: 2009Q1

REPORT INFORMATION
  Report Type: 
  Country: None (occurrence: None)
  Receive Date: 20090325
  Receipt Date: 20090313
  Transmission Date: 20090719
  Serious: Yes (Disabling, Other)
  Sender: FDA-Public Use
  Company Number: AU-WYE-G03318009

PATIENT
  Sex: Female

DRUGS (3)
  1. EFFEXOR XR [Suspect]
     Indication: DEPRESSION
     Route: 048
     Dates: start: 20080901, end: 20090301
  2. EFFEXOR XR [Suspect]
     Indication: ANXIETY
     Route: 048
     Dates: start: 20090302, end: 20090301
  3. EFFEXOR XR [Suspect]
     Route: 048
     Dates: start: 20090301

REACTIONS (21)
  - CONSTIPATION [None]
  - CRYING [None]
  - DECREASED INTEREST [None]
  - DEREALISATION [None]
  - DIARRHOEA [None]
  - DIZZINESS [None]
  - DRUG EFFECT DECREASED [None]
  - DRUG WITHDRAWAL SYNDROME [None]
  - EMOTIONAL DISORDER [None]
  - EMOTIONAL DISTRESS [None]
  - FEAR [None]
  - FEELING ABNORMAL [None]
  - HYPERHIDROSIS [None]
  - INTESTINAL OBSTRUCTION [None]
  - MENTAL DISORDER [None]
  - MOOD SWINGS [None]
  - NAUSEA [None]
  - SUICIDAL IDEATION [None]
  - THINKING ABNORMAL [None]
  - TREMOR [None]
  - UNEVALUABLE EVENT [None]
